FAERS Safety Report 9205850 (Version 1)
Quarter: 2013Q1

REPORT INFORMATION
  Report Type: Spontaneous
  Country: US (occurrence: None)
  Receive Date: 20120709
  Receipt Date: 20120709
  Transmission Date: 20140127
  Serious: Yes (Hospitalization)
  Sender: FDA-Public Use
  Company Number: PHEH2011US04704

PATIENT
  Age: 79 Year
  Sex: Male

DRUGS (4)
  1. GLEEVEC (IMATINIB) [Suspect]
     Indication: CHRONIC MYELOID LEUKAEMIA
     Route: 048
     Dates: start: 20090831
  2. BLOOD CELLS, RED (RED BLOOD CELLS) [Concomitant]
  3. PLASMA (PLASMA) [Concomitant]
  4. COUMADINE (WARFARIN SODIUM) [Concomitant]

REACTIONS (2)
  - Rectal haemorrhage [None]
  - Hair texture abnormal [None]
